FAERS Safety Report 16833903 (Version 2)
Quarter: 2021Q3

REPORT INFORMATION
  Report Type: Report from Study
  Country: CA (occurrence: CA)
  Receive Date: 20190920
  Receipt Date: 20210909
  Transmission Date: 20211014
  Serious: Yes (Hospitalization)
  Sender: FDA-Public Use
  Company Number: CA-JNJFOC-20190919411

PATIENT
  Age: 48 Year
  Sex: Male
  Weight: 68 kg

DRUGS (2)
  1. STELARA [Suspect]
     Active Substance: USTEKINUMAB
     Dosage: RESTARTED
     Route: 042
     Dates: start: 20210902
  2. STELARA [Suspect]
     Active Substance: USTEKINUMAB
     Indication: CROHN^S DISEASE
     Route: 042
     Dates: start: 20190723, end: 201909

REACTIONS (5)
  - Infection [Recovering/Resolving]
  - Product use issue [Unknown]
  - Off label use [Unknown]
  - Surgery [Unknown]
  - Intestinal obstruction [Unknown]
